FAERS Safety Report 15658167 (Version 1)
Quarter: 2018Q4

REPORT INFORMATION
  Report Type: Spontaneous
  Country: US (occurrence: US)
  Receive Date: 20181126
  Receipt Date: 20181126
  Transmission Date: 20190205
  Serious: Yes (Other)
  Sender: FDA-Public Use
  Company Number: US-SUNOVION-2018SUN004521

PATIENT
  Age: 33 Year
  Sex: Female
  Weight: 74.83 kg

DRUGS (3)
  1. APTIOM [Suspect]
     Active Substance: ESLICARBAZEPINE ACETATE
     Indication: EPILEPSY
     Dosage: UNK, QD
     Route: 048
     Dates: start: 201807, end: 201807
  2. ZONEGRAN [Concomitant]
     Active Substance: ZONISAMIDE
     Dosage: UNK, QD
     Route: 048
  3. PHENOBARBITAL. [Concomitant]
     Active Substance: PHENOBARBITAL
     Dosage: UNK, QD
     Route: 048

REACTIONS (2)
  - Anger [Unknown]
  - Seizure [Not Recovered/Not Resolved]

NARRATIVE: CASE EVENT DATE: 201807
